FAERS Safety Report 23661752 (Version 2)
Quarter: 2024Q1

REPORT INFORMATION
  Report Type: Other
  Country: US (occurrence: None)
  Receive Date: 20240322
  Receipt Date: 20240326
  Transmission Date: 20240410
  Serious: Yes (Other)
  Sender: FDA-Public Use
  Company Number: US-ROCHE-3524570

PATIENT
  Age: 58 Year
  Sex: Male

DRUGS (13)
  1. OCREVUS [Suspect]
     Active Substance: OCRELIZUMAB
     Indication: Relapsing multiple sclerosis
     Route: 042
     Dates: start: 20211221
  2. TYLENOL [Concomitant]
     Active Substance: ACETAMINOPHEN
  3. AMPYRA [Concomitant]
     Active Substance: DALFAMPRIDINE
  4. VIBRAMYCIN [Concomitant]
     Active Substance: DOXYCYCLINE
  5. CYMBALTA [Concomitant]
     Active Substance: DULOXETINE HYDROCHLORIDE
  6. GABAPENTIN [Concomitant]
     Active Substance: GABAPENTIN
  7. LISINOPRIL [Concomitant]
     Active Substance: LISINOPRIL
  8. MORNIFLUMATE [Concomitant]
     Active Substance: MORNIFLUMATE
  9. ULTRAM [Concomitant]
     Active Substance: TRAMADOL HYDROCHLORIDE
  10. BACLOFEN [Concomitant]
     Active Substance: BACLOFEN
  11. FLUTICASONE [Concomitant]
     Active Substance: FLUTICASONE
  12. OMEPRAZOLE [Concomitant]
     Active Substance: OMEPRAZOLE
  13. SERTRALINE [Concomitant]
     Active Substance: SERTRALINE HYDROCHLORIDE

REACTIONS (1)
  - Urinary tract infection [Unknown]

NARRATIVE: CASE EVENT DATE: 20240201
